FAERS Safety Report 10900585 (Version 2)
Quarter: 2015Q1

REPORT INFORMATION
  Report Type: Spontaneous
  Country: IN (occurrence: IN)
  Receive Date: 20150310
  Receipt Date: 20150316
  Transmission Date: 20150721
  Serious: Yes (Hospitalization)
  Sender: FDA-Public Use
  Company Number: IN-AUROBINDO-AUR-APL-2015-01857

PATIENT
  Age: 28 Year
  Sex: Male

DRUGS (1)
  1. RISPERIDONE 6MG [Suspect]
     Active Substance: RISPERIDONE
     Indication: SCHIZOPHRENIA
     Dosage: 6 MG, DAILY
     Route: 065

REACTIONS (2)
  - Painful erection [Recovered/Resolved]
  - Priapism [Recovered/Resolved]
